FAERS Safety Report 25238413 (Version 1)
Quarter: 2025Q2

REPORT INFORMATION
  Report Type: Spontaneous
  Country: US (occurrence: None)
  Receive Date: 20250424
  Receipt Date: 20250424
  Transmission Date: 20250717
  Serious: Yes (Other)
  Sender: FDA-CTU
  Company Number: None

PATIENT
  Sex: Male

DRUGS (11)
  1. SODIUM CHLORIDE [Suspect]
     Active Substance: SODIUM CHLORIDE
     Indication: Cystic fibrosis
     Dosage: FREQUENCY : TWICE A DAY;?
     Dates: start: 20250322
  2. ALBUTEROL SULFATE [Concomitant]
     Active Substance: ALBUTEROL SULFATE
  3. AZITHROMYCIN [Concomitant]
     Active Substance: AZITHROMYCIN
  4. AZITHROMYCIN [Concomitant]
     Active Substance: AZITHROMYCIN
  5. LACTULOSE [Concomitant]
     Active Substance: LACTULOSE
  6. MIRALAX POW 3350 NF [Concomitant]
  7. PERTZYE CAP 24000U [Concomitant]
  8. PULMOZYME [Concomitant]
     Active Substance: DORNASE ALFA
  9. RELIZORB MIS [Concomitant]
  10. SENNA CAP 8.6MG [Concomitant]
  11. SODIUM CHLORIDE [Concomitant]
     Active Substance: SODIUM CHLORIDE

REACTIONS (3)
  - Constipation [None]
  - Pneumonia [None]
  - Hepatic enzyme increased [None]
